FAERS Safety Report 8815329 (Version 1)
Quarter: 2012Q4

REPORT INFORMATION
  Report Type: Report from Study
  Country: FR (occurrence: FR)
  Receive Date: 20120928
  Receipt Date: 20120928
  Transmission Date: 20130627
  Serious: Yes (Hospitalization)
  Sender: FDA-Public Use
  Company Number: FR-ASTRAZENECA-2012SE74079

PATIENT
  Age: 28237 Day
  Sex: Male

DRUGS (9)
  1. AZD6140 [Suspect]
     Indication: CORONARY ARTERY DISEASE
     Route: 048
     Dates: start: 20111220
  2. METFORMIN [Concomitant]
     Indication: TYPE 2 DIABETES MELLITUS
     Route: 048
  3. TAHOR [Concomitant]
     Indication: HYPERCHOLESTEROLAEMIA
     Route: 048
  4. FUROSEMIDE [Concomitant]
     Indication: CARDIAC FAILURE
     Route: 048
  5. APROVEL [Concomitant]
     Indication: HYPERTENSION
     Route: 048
  6. SECTRAL [Concomitant]
     Indication: ISCHAEMIC HEART DISEASE PROPHYLAXIS
     Route: 048
  7. JANUVIA [Concomitant]
     Indication: TYPE 2 DIABETES MELLITUS
     Route: 048
  8. INEXIUM [Concomitant]
     Indication: GASTRITIS PROPHYLAXIS
     Route: 048
  9. AMLOR [Concomitant]
     Indication: ANGINA PECTORIS
     Route: 048

REACTIONS (1)
  - Calculus urethral [Recovered/Resolved]
